FAERS Safety Report 11262619 (Version 2)
Quarter: 2017Q2

REPORT INFORMATION
  Report Type: Spontaneous
  Country: US (occurrence: US)
  Receive Date: 20150710
  Receipt Date: 20170607
  Transmission Date: 20170829
  Serious: No
  Sender: FDA-Public Use
  Company Number: US-PURDUE-USA-2015-0123799

PATIENT
  Sex: Female

DRUGS (2)
  1. BUTRANS [Suspect]
     Active Substance: BUPRENORPHINE
     Dosage: 20 MCG/HR, WEEKLY
     Route: 062
     Dates: end: 20150517
  2. BUTRANS [Suspect]
     Active Substance: BUPRENORPHINE
     Indication: ANALGESIC THERAPY
     Dosage: 20 MCG/HR, WEEKLY
     Route: 062

REACTIONS (6)
  - Application site irritation [Recovered/Resolved]
  - Drug effect decreased [Unknown]
  - Application site erythema [Unknown]
  - Application site pruritus [Unknown]
  - Drug administered at inappropriate site [Unknown]
  - Product adhesion issue [Unknown]
